FAERS Safety Report 17654164 (Version 1)
Quarter: 2020Q2

REPORT INFORMATION
  Report Type: Spontaneous
  Country: CH (occurrence: CH)
  Receive Date: 20200410
  Receipt Date: 20200410
  Transmission Date: 20200713
  Serious: Yes (Congenital Anomaly, Other)
  Sender: FDA-Public Use
  Company Number: CH-MICRO LABS LIMITED-ML2020-01146

PATIENT
  Sex: Male

DRUGS (4)
  1. DICLOFENAC [Suspect]
     Active Substance: DICLOFENAC
     Route: 064
  2. PHENTERMINE. [Suspect]
     Active Substance: PHENTERMINE
     Route: 064
  3. FLUFENAMIC ACID [Suspect]
     Active Substance: FLUFENAMIC ACID
     Route: 064
  4. TIZANIDINE. [Suspect]
     Active Substance: TIZANIDINE
     Route: 064

REACTIONS (2)
  - Hypospadias [Unknown]
  - Foetal exposure during pregnancy [Unknown]
